FAERS Safety Report 15340104 (Version 1)
Quarter: 2018Q3

REPORT INFORMATION
  Report Type: Spontaneous
  Country: FR (occurrence: FR)
  Receive Date: 20180831
  Receipt Date: 20180831
  Transmission Date: 20181010
  Serious: Yes (Hospitalization)
  Sender: FDA-Public Use
  Company Number: FR-009507513-1808FRA009136

PATIENT
  Age: 27 Year
  Sex: Female

DRUGS (4)
  1. ORGALUTRAN [Suspect]
     Active Substance: GANIRELIX ACETATE
     Indication: CONTROLLED OVARIAN STIMULATION
     Dosage: 0.25 MG, QD, CONCENTRATION 0.25 MG/0.5 ML
     Route: 058
     Dates: start: 20170930, end: 20171007
  2. DECAPEPTYL (ACETATE) [Suspect]
     Active Substance: TRIPTORELIN ACETATE
     Indication: PRODUCT USED FOR UNKNOWN INDICATION
     Dosage: IN TOTAL
     Route: 058
     Dates: start: 20171007, end: 20171007
  3. OVITRELLE [Suspect]
     Active Substance: CHORIOGONADOTROPIN ALFA
     Indication: OVULATION INDUCTION
     Dosage: IN TOTAL
     Route: 058
     Dates: start: 20171007, end: 20171007
  4. FOSTIMON [Suspect]
     Active Substance: UROFOLLITROPIN
     Indication: CONTROLLED OVARIAN STIMULATION
     Dosage: 300 IU, QD
     Route: 058
     Dates: start: 20170923, end: 20171006

REACTIONS (2)
  - Ascites [Recovered/Resolved]
  - Ovarian hyperstimulation syndrome [Recovered/Resolved]

NARRATIVE: CASE EVENT DATE: 20171010
